FAERS Safety Report 6660738-2 (Version None)
Quarter: 2010Q1

REPORT INFORMATION
  Report Type: 
  Country: None (occurrence: None)
  Receive Date: 20100326
  Receipt Date: 20100318
  Transmission Date: 20100710
  Serious: Yes (Death, Hospitalization)
  Sender: FDA-Public Use
  Company Number: 008688

PATIENT
  Age: 80 Year
  Sex: Female

DRUGS (1)
  1. ALPROSTADIL [Suspect]
     Indication: INTESTINAL ISCHAEMIA
     Dosage: (0.03 UG/KG 1X/MINUTE INTRAVENOUS (NOT OTHERWISE SPECIFIED))
     Route: 042

REACTIONS (1)
  - INFECTION [None]
